FAERS Safety Report 24819144 (Version 1)
Quarter: 2025Q1

REPORT INFORMATION
  Report Type: Spontaneous
  Country: NL (occurrence: None)
  Receive Date: 20250107
  Receipt Date: 20250107
  Transmission Date: 20250408
  Serious: Yes (Disabling)
  Sender: FDA-CTU
  Company Number: None

PATIENT
  Age: 27 Year
  Sex: Male
  Weight: 80 kg

DRUGS (1)
  1. NORTRIPTYLINE [Suspect]
     Active Substance: NORTRIPTYLINE
     Indication: Depression

REACTIONS (4)
  - Anorgasmia [None]
  - Erectile dysfunction [None]
  - Libido decreased [None]
  - Emotional disorder [None]

NARRATIVE: CASE EVENT DATE: 20210105
